FAERS Safety Report 19700987 (Version 1)
Quarter: 2021Q3

REPORT INFORMATION
  Report Type: Spontaneous
  Country: DE (occurrence: DE)
  Receive Date: 20210813
  Receipt Date: 20210813
  Transmission Date: 20211014
  Serious: Yes (Hospitalization)
  Sender: FDA-Public Use
  Company Number: NVSC2021DE175470

PATIENT
  Age: 68 Year
  Sex: Female

DRUGS (2)
  1. CEFPODOXIME SANDOZ [Suspect]
     Active Substance: CEFPODOXIME
     Indication: PRODUCT USED FOR UNKNOWN INDICATION
     Dosage: 200 MG, Q12H (1?0?1?0, TABLETTEN)
     Route: 048
  2. METRONIDAZOLE. [Suspect]
     Active Substance: METRONIDAZOLE
     Indication: PRODUCT USED FOR UNKNOWN INDICATION
     Dosage: 400 MG, Q12H (1?0?1?0, TABLETTEN)
     Route: 048

REACTIONS (3)
  - Abdominal pain lower [Unknown]
  - Polyuria [Unknown]
  - Nausea [Unknown]
